FAERS Safety Report 6221138-2 (Version None)
Quarter: 2009Q2

REPORT INFORMATION
  Report Type: 
  Country: None (occurrence: None)
  Receive Date: 20090608
  Receipt Date: 20090526
  Transmission Date: 20091009
  Serious: Yes (Hospitalization)
  Sender: FDA-Public Use
  Company Number: 1-18613109

PATIENT
  Sex: Male

DRUGS (1)
  1. GLYBURIDE [Suspect]
     Indication: SEXUAL DYSFUNCTION
     Dosage: UNK UNK ORAL
     Route: 048

REACTIONS (7)
  - ABDOMINAL DISTENSION [None]
  - ACCIDENTAL OVERDOSE [None]
  - ANOREXIA [None]
  - BLOOD PRESSURE DIASTOLIC INCREASED [None]
  - CONFUSIONAL STATE [None]
  - HEART RATE INCREASED [None]
  - HYPOGLYCAEMIA [None]
